FAERS Safety Report 9696861 (Version 1)
Quarter: 2013Q4

REPORT INFORMATION
  Report Type: Spontaneous
  Country: US (occurrence: US)
  Receive Date: 20131119
  Receipt Date: 20131119
  Transmission Date: 20140711
  Serious: No
  Sender: FDA-Public Use
  Company Number: US-GILEAD-2007-0013807

PATIENT
  Sex: Female
  Weight: 45.36 kg

DRUGS (7)
  1. LETAIRIS [Suspect]
     Indication: PULMONARY ARTERIAL HYPERTENSION
     Route: 048
  2. LETAIRIS [Suspect]
     Route: 048
     Dates: start: 20070803
  3. EPI-PEN [Concomitant]
     Route: 030
  4. FUROSEMIDE [Concomitant]
  5. REVATIO [Concomitant]
     Route: 048
  6. OXYGEN [Concomitant]
     Dosage: AT BEDTIME
     Route: 045
  7. VENTAVIS [Concomitant]
     Route: 055

REACTIONS (1)
  - Sinusitis [Unknown]
